FAERS Safety Report 8634003 (Version 3)
Quarter: 2014Q2

REPORT INFORMATION
  Report Type: Spontaneous
  Country: US (occurrence: US)
  Receive Date: 20120626
  Receipt Date: 20140402
  Transmission Date: 20141212
  Serious: Yes (Other)
  Sender: FDA-Public Use
  Company Number: US-ASTRAZENECA-2012SE35826

PATIENT
  Age: 22562 Day
  Sex: Female

DRUGS (27)
  1. NEXIUM [Suspect]
     Indication: GASTRIC DISORDER
     Route: 048
     Dates: start: 20100317
  2. NEXIUM [Suspect]
     Indication: GASTRIC DISORDER
     Route: 048
     Dates: start: 20100729
  3. NEXIUM [Suspect]
     Indication: GASTRIC DISORDER
     Route: 048
     Dates: start: 20100923
  4. PROTONIX [Concomitant]
     Route: 048
     Dates: start: 20120301
  5. OYST CAL [Concomitant]
  6. LEVOTHYROXINE [Concomitant]
     Route: 048
     Dates: start: 20080415
  7. LEVOTHYROXINE [Concomitant]
     Route: 048
     Dates: start: 20091028
  8. FOSAMAX [Concomitant]
  9. LISINOPRIL [Concomitant]
  10. VIT D [Concomitant]
  11. CENTRUM SILVER [Concomitant]
  12. ABILIFY [Concomitant]
     Route: 048
     Dates: start: 20060501
  13. WELLBUTRIN XL [Concomitant]
     Route: 048
     Dates: start: 20060501
  14. PANGESTYME [Concomitant]
     Route: 048
     Dates: start: 20060111
  15. LIPITOR [Concomitant]
     Route: 048
     Dates: start: 20061214
  16. LIPITOR [Concomitant]
     Route: 048
     Dates: start: 20070328
  17. NIASPAN [Concomitant]
     Route: 048
     Dates: start: 20061213
  18. PREVACID [Concomitant]
     Route: 048
     Dates: start: 20060111
  19. ASPIRIN [Concomitant]
     Route: 048
     Dates: start: 20080415
  20. ALTACE [Concomitant]
     Route: 048
     Dates: start: 20081218
  21. TOPROL XL [Concomitant]
     Route: 048
     Dates: start: 20081218
  22. CREON [Concomitant]
     Route: 048
     Dates: start: 20081218
  23. LEXAPRO [Concomitant]
     Route: 048
     Dates: start: 20110124
  24. ZETIA [Concomitant]
     Route: 048
     Dates: start: 20100923
  25. FOLIC ACID [Concomitant]
     Route: 048
     Dates: start: 20100923
  26. FERROUS SULFATE [Concomitant]
     Route: 048
     Dates: start: 20101209
  27. BISACODYL [Concomitant]
     Dosage: 5 MG, AS DIRECTED
     Route: 048
     Dates: start: 20120428

REACTIONS (4)
  - Lumbar vertebral fracture [Unknown]
  - Osteoporosis [Unknown]
  - Spinal osteoarthritis [Unknown]
  - Osteopenia [Unknown]
